FAERS Safety Report 19847966 (Version 2)
Quarter: 2022Q3

REPORT INFORMATION
  Report Type: Spontaneous
  Country: US (occurrence: US)
  Receive Date: 20210917
  Receipt Date: 20220921
  Transmission Date: 20221026
  Serious: Yes (Other)
  Sender: FDA-Public Use
  Company Number: US-NOVARTISTESTPH-NVSC2021US209392

PATIENT
  Age: 70 Year
  Sex: Female
  Weight: 56.69 kg

DRUGS (2)
  1. XIIDRA [Suspect]
     Active Substance: LIFITEGRAST
     Indication: Dry eye
     Dosage: 50 MG, BID (INTO THE EYES)
     Route: 047
     Dates: start: 20210518, end: 20210825
  2. XIIDRA [Suspect]
     Active Substance: LIFITEGRAST
     Dosage: 50 MG, BID
     Route: 047
     Dates: start: 20210919, end: 20220919

REACTIONS (2)
  - Eye irritation [Recovered/Resolved]
  - Dysgeusia [Recovered/Resolved]

NARRATIVE: CASE EVENT DATE: 20210518
